FAERS Safety Report 10915378 (Version 1)
Quarter: 2015Q1

REPORT INFORMATION
  Report Type: Report from Study
  Country: US (occurrence: US)
  Receive Date: 20150316
  Receipt Date: 20150316
  Transmission Date: 20150721
  Serious: Yes (Other)
  Sender: FDA-Public Use
  Company Number: US-ACCORD-029261

PATIENT
  Age: 71 Year

DRUGS (1)
  1. MITOMYCIN. [Suspect]
     Active Substance: MITOMYCIN
     Indication: ADJUVANT THERAPY
     Dosage: TOPICAL/4 TIMES A DAY FOR 2 WK
     Route: 061

REACTIONS (2)
  - Scleritis [Unknown]
  - Scleral thinning [Unknown]
